FAERS Safety Report 17007771 (Version 1)
Quarter: 2019Q4

REPORT INFORMATION
  Report Type: Spontaneous
  Country: US (occurrence: US)
  Receive Date: 20191108
  Receipt Date: 20191108
  Transmission Date: 20200122
  Serious: No
  Sender: FDA-Public Use
  Company Number: US-TEVA-2019-US-1134532

PATIENT
  Sex: Female

DRUGS (1)
  1. DIAZEPAM TEVA [Suspect]
     Active Substance: DIAZEPAM
     Indication: ANXIETY
     Dosage: 5 MG
     Route: 048

REACTIONS (6)
  - Anxiety [Unknown]
  - Dry mouth [Unknown]
  - Rash [Unknown]
  - Dysgeusia [Unknown]
  - Nervousness [Unknown]
  - Product substitution issue [Unknown]
